FAERS Safety Report 13304371 (Version 2)
Quarter: 2017Q2

REPORT INFORMATION
  Report Type: Report from Study
  Country: US (occurrence: US)
  Receive Date: 20170308
  Receipt Date: 20170505
  Transmission Date: 20170830
  Serious: Yes (Other)
  Sender: FDA-Public Use
  Company Number: US-BRISTOL-MYERS SQUIBB COMPANY-BMS-2017-018091

PATIENT
  Sex: Female

DRUGS (1)
  1. NIVOLUMAB [Suspect]
     Active Substance: NIVOLUMAB
     Indication: LUNG NEOPLASM MALIGNANT
     Route: 042

REACTIONS (7)
  - Nausea [Unknown]
  - Hunger [Unknown]
  - Constipation [Unknown]
  - Musculoskeletal pain [Unknown]
  - Aspiration pleural cavity [Unknown]
  - Pain in extremity [Unknown]
  - Abdominal pain upper [Unknown]
